FAERS Safety Report 6355249-8 (Version None)
Quarter: 2009Q3

REPORT INFORMATION
  Report Type: 
  Country: None (occurrence: None)
  Receive Date: 20090914
  Receipt Date: 20090902
  Transmission Date: 20100115
  Serious: Yes (Hospitalization)
  Sender: FDA-Public Use
  Company Number: ES-ROCHE-654482

PATIENT
  Sex: Female
  Weight: 55.6 kg

DRUGS (9)
  1. CAPECITABINE [Suspect]
     Dosage: FREQUENCY-DAT 2- DAY 8: Q2W
     Route: 048
     Dates: start: 20090812
  2. CAPECITABINE [Suspect]
     Dosage: DAY2-DAY8: Q2W
     Route: 048
     Dates: start: 20090831
  3. BEVACIZUMAB [Suspect]
     Dosage: FORM-INFUSSION
     Route: 042
     Dates: start: 20090812, end: 20090822
  4. BEVACIZUMAB [Suspect]
     Route: 042
     Dates: start: 20090831
  5. IRINOTECAN HCL [Suspect]
     Dosage: FORM-INFUSSION
     Route: 042
     Dates: start: 20090812, end: 20090822
  6. IRINOTECAN HCL [Suspect]
     Route: 042
     Dates: start: 20090831
  7. SIMVASTATIN [Concomitant]
     Dates: start: 20090501
  8. EMULIQUEN [Concomitant]
     Dates: start: 20090801, end: 20090822
  9. TOPAMAX [Concomitant]

REACTIONS (1)
  - COLITIS [None]
